FAERS Safety Report 21938001 (Version 1)
Quarter: 2023Q1

REPORT INFORMATION
  Report Type: Spontaneous
  Country: CN (occurrence: CN)
  Receive Date: 20230201
  Receipt Date: 20230201
  Transmission Date: 20230418
  Serious: Yes (Other)
  Sender: FDA-Public Use
  Company Number: CN-INSUD PHARMA-2301CN00483

PATIENT

DRUGS (1)
  1. NUVESSA [Suspect]
     Active Substance: METRONIDAZOLE
     Indication: Amoebiasis
     Dosage: 500 MG, Q8H
     Route: 042

REACTIONS (7)
  - Loss of consciousness [Unknown]
  - Somnolence [Unknown]
  - Psychiatric symptom [Unknown]
  - Nausea [Unknown]
  - Vomiting [Unknown]
  - Diarrhoea [Unknown]
  - Drug ineffective [Unknown]
